FAERS Safety Report 13092492 (Version 1)
Quarter: 2017Q1

REPORT INFORMATION
  Report Type: Spontaneous
  Country: US (occurrence: US)
  Receive Date: 20170106
  Receipt Date: 20170106
  Transmission Date: 20170428
  Serious: No
  Sender: FDA-Public Use
  Company Number: US-JNJFOC-20161126162

PATIENT
  Age: 78 Year
  Sex: Male
  Weight: 60.78 kg

DRUGS (2)
  1. TYLENOL 8 HR ARTHRITIS PAIN [Suspect]
     Active Substance: ACETAMINOPHEN
     Indication: HEADACHE
     Dosage: 1/2 CAPLET MAINLY BEFORE BED
     Route: 048
     Dates: start: 20161116
  2. TYLENOL 8 HR ARTHRITIS PAIN [Suspect]
     Active Substance: ACETAMINOPHEN
     Indication: ARTHRITIS
     Dosage: 1/2 CAPLET MAINLY BEFORE BED
     Route: 048
     Dates: start: 20161116

REACTIONS (1)
  - Wrong technique in product usage process [Unknown]
